FAERS Safety Report 21537453 (Version 1)
Quarter: 2022Q4

REPORT INFORMATION
  Report Type: Spontaneous
  Country: PT (occurrence: PT)
  Receive Date: 20221101
  Receipt Date: 20221101
  Transmission Date: 20230113
  Serious: Yes (Other)
  Sender: FDA-Public Use
  Company Number: PT-ROCHE-3203443

PATIENT
  Age: 38 Year
  Sex: Male
  Weight: 70 kg

DRUGS (16)
  1. DEXAMETHASONE [Suspect]
     Active Substance: DEXAMETHASONE
     Indication: Hodgkin^s disease
     Route: 065
     Dates: start: 20220716, end: 20220906
  2. POLIVY [Suspect]
     Active Substance: POLATUZUMAB VEDOTIN-PIIQ
     Indication: Hodgkin^s disease
     Route: 065
     Dates: start: 20220907, end: 20220928
  3. ETOPOSIDE [Suspect]
     Active Substance: ETOPOSIDE
     Indication: Hodgkin^s disease
     Route: 065
     Dates: start: 20220612, end: 20220715
  4. CARBOPLATIN [Suspect]
     Active Substance: CARBOPLATIN
     Indication: Hodgkin^s disease
     Route: 065
     Dates: start: 20220612, end: 20220715
  5. IFOSFAMIDE [Suspect]
     Active Substance: IFOSFAMIDE
     Indication: Hodgkin^s disease
     Route: 065
     Dates: start: 20220612, end: 20220715
  6. CISPLATIN [Suspect]
     Active Substance: CISPLATIN
     Indication: Hodgkin^s disease
     Route: 065
     Dates: start: 20220716, end: 20220906
  7. BENDAMUSTINE [Suspect]
     Active Substance: BENDAMUSTINE
     Indication: Hodgkin^s disease
     Route: 065
     Dates: start: 20220907, end: 20220928
  8. METHYLPREDNISOLONE [Suspect]
     Active Substance: METHYLPREDNISOLONE
     Indication: Hodgkin^s disease
     Route: 065
  9. CYTARABINE [Suspect]
     Active Substance: CYTARABINE
     Indication: Hodgkin^s disease
     Route: 065
     Dates: start: 20220716, end: 20220906
  10. OXALIPLATIN [Suspect]
     Active Substance: OXALIPLATIN
     Indication: Hodgkin^s disease
     Route: 065
     Dates: start: 20220929, end: 20221017
  11. RITUXIMAB [Suspect]
     Active Substance: RITUXIMAB
     Indication: Hodgkin^s disease
     Route: 065
     Dates: start: 20220929, end: 20221017
  12. RITUXIMAB [Suspect]
     Active Substance: RITUXIMAB
     Route: 065
     Dates: start: 20220716, end: 20220906
  13. RITUXIMAB [Suspect]
     Active Substance: RITUXIMAB
     Route: 065
     Dates: start: 20220612, end: 20220715
  14. RITUXIMAB [Suspect]
     Active Substance: RITUXIMAB
     Route: 065
     Dates: start: 20220907, end: 20220928
  15. GEMCITABINE [Suspect]
     Active Substance: GEMCITABINE
     Indication: Hodgkin^s disease
     Route: 065
     Dates: start: 20220929, end: 20221017
  16. BLEOMYCIN\DACARBAZINE\DOXORUBICIN\VINBLASTINE [Concomitant]
     Active Substance: BLEOMYCIN\DACARBAZINE\DOXORUBICIN\VINBLASTINE
     Indication: Hodgkin^s disease
     Dates: start: 20211202, end: 20220505

REACTIONS (3)
  - Disease progression [Unknown]
  - Disease recurrence [Unknown]
  - Drug ineffective [Unknown]
